FAERS Safety Report 11220378 (Version 1)
Quarter: 2015Q2

REPORT INFORMATION
  Report Type: Spontaneous
  Country: US (occurrence: None)
  Receive Date: 20150625
  Receipt Date: 20150625
  Transmission Date: 20150821
  Serious: No
  Sender: FDA-Public Use
  Company Number: None

PATIENT

DRUGS (2)
  1. GENTAMICIN SULFATE (GENTAMICIN) [Suspect]
     Active Substance: GENTAMICIN SULFATE
     Dosage: DOSAGE FORM: INJECTABLE  ADM ROUTE: IM OR IV USE  TYPE: MULTIPLE DOSE VIAL
  2. PIPERACILLIN AND TAZOBACTAM [Suspect]
     Active Substance: PIPERACILLIN SODIUM\TAZOBACTAM SODIUM
     Dosage: DOSAGE FORM: INJECTABLE  ADM ROUTE: IV USE ONLY?STRENGTH: 2.25 GRAMS/VIAL  TYPE: SINGLE USE VIAL?

REACTIONS (2)
  - Product label confusion [None]
  - Circumstance or information capable of leading to medication error [None]
